FAERS Safety Report 25689451 (Version 1)
Quarter: 2025Q3

REPORT INFORMATION
  Report Type: Spontaneous
  Country: EU (occurrence: EU)
  Receive Date: 20250818
  Receipt Date: 20250818
  Transmission Date: 20251021
  Serious: Yes (Death, Disabling)
  Sender: TEVA
  Company Number: None

PATIENT
  Age: 36 Year
  Sex: Male
  Weight: 67 kg

DRUGS (1)
  1. TOPIRAMATE [Suspect]
     Active Substance: TOPIRAMATE
     Indication: Migraine
     Route: 065
     Dates: start: 20230610, end: 20230610

REACTIONS (3)
  - Anxiety [Fatal]
  - Suicidal ideation [Fatal]
  - Completed suicide [Fatal]

NARRATIVE: CASE EVENT DATE: 20230611
